FAERS Safety Report 4833888-0 (Version None)
Quarter: 2005Q4

REPORT INFORMATION
  Report Type: 
  Country: None (occurrence: None)
  Receive Date: 20051122
  Receipt Date: 20051116
  Transmission Date: 20060501
  Serious: Yes (Hospitalization)
  Sender: FDA-Public Use
  Company Number: US-BOEHRINGER INGELHEIM PHARMACEUTICALS, INC.-2005-BP-20377BP

PATIENT
  Age: 81 Year
  Sex: Female

DRUGS (6)
  1. ATROVENT [Suspect]
     Indication: CHRONIC OBSTRUCTIVE PULMONARY DISEASE
     Route: 055
     Dates: start: 20000901
  2. AROMASIN [Suspect]
     Indication: BREAST CANCER
     Route: 048
     Dates: start: 20020417
  3. M.V.I. [Concomitant]
  4. VITAMIN E [Concomitant]
     Dates: start: 20000101
  5. FEMOVIRIN [Concomitant]
     Dates: start: 20000101
  6. ZOCOR [Concomitant]
     Dates: start: 20050401

REACTIONS (7)
  - ANAEMIA POSTOPERATIVE [None]
  - ATELECTASIS [None]
  - CARDIAC FAILURE CONGESTIVE [None]
  - HAEMANGIOMA [None]
  - HEPATIC MASS [None]
  - PLEURAL EFFUSION [None]
  - PYREXIA [None]
